FAERS Safety Report 10052401 (Version 2)
Quarter: 2014Q2

REPORT INFORMATION
  Report Type: Spontaneous
  Country: DE (occurrence: DE)
  Receive Date: 20140402
  Receipt Date: 20140603
  Transmission Date: 20141212
  Serious: Yes (Other)
  Sender: FDA-Public Use
  Company Number: DE-JNJFOC-20140400584

PATIENT
  Sex: Male
  Weight: 91.16 kg

DRUGS (11)
  1. XARELTO [Suspect]
     Indication: CEREBROVASCULAR ACCIDENT PROPHYLAXIS
     Route: 048
     Dates: start: 20120131, end: 20140502
  2. XARELTO [Suspect]
     Indication: ATRIAL FIBRILLATION
     Route: 048
     Dates: start: 20120131, end: 20140502
  3. TORASEMID [Concomitant]
     Indication: OEDEMA
     Dates: start: 20120213, end: 20120711
  4. ASS [Concomitant]
     Indication: PRODUCT USED FOR UNKNOWN INDICATION
     Route: 065
  5. MULTAQ [Concomitant]
     Indication: CARDIAC FAILURE
     Dates: start: 20120127
  6. VOTUM [Concomitant]
     Indication: HYPERTENSION
     Dates: start: 20120215
  7. CARMEN [Concomitant]
     Indication: HYPERTENSION
  8. AMLODIPINE [Concomitant]
     Indication: HYPERTENSION
  9. ARCOXIA [Concomitant]
     Indication: ARTHRITIS
  10. ARCOXIA [Concomitant]
     Indication: OSTEOARTHRITIS
  11. NEBIVOLOL [Concomitant]
     Indication: ARRHYTHMIA
     Dates: end: 20121231

REACTIONS (6)
  - Gastrointestinal haemorrhage [Recovering/Resolving]
  - Haemoglobin decreased [Recovering/Resolving]
  - Gastritis erosive [Recovering/Resolving]
  - Hypochromic anaemia [Recovering/Resolving]
  - Aphthous stomatitis [Recovering/Resolving]
  - Angina pectoris [Recovering/Resolving]
